FAERS Safety Report 9156470 (Version 1)
Quarter: 2013Q1

REPORT INFORMATION
  Report Type: Spontaneous
  Country: DE (occurrence: None)
  Receive Date: 20130208
  Receipt Date: 20130208
  Transmission Date: 20140127
  Serious: Yes (Hospitalization, Other)
  Sender: FDA-Public Use
  Company Number: FRVA20130002

PATIENT
  Age: 49 Year
  Sex: Male

DRUGS (3)
  1. FROVA [Suspect]
     Indication: MIGRAINE
     Route: 048
  2. SUMATRIPTAN [Suspect]
     Indication: MIGRAINE
  3. ZOLMITRIPTAN [Suspect]
     Indication: MIGRAINE

REACTIONS (4)
  - Major depression [None]
  - Off label use [None]
  - Withdrawal syndrome [None]
  - Self-medication [None]
